FAERS Safety Report 26025890 (Version 3)
Quarter: 2025Q4

REPORT INFORMATION
  Report Type: Report from Study
  Country: JP (occurrence: JP)
  Receive Date: 20251111
  Receipt Date: 20251215
  Transmission Date: 20260117
  Serious: Yes (Life-Threatening, Hospitalization, Other)
  Sender: ALEXION PHARMACEUTICALS
  Company Number: JP-ASTRAZENECA-202510JPN025744JP

PATIENT
  Age: 48 Year
  Sex: Male
  Weight: 58.6 kg

DRUGS (15)
  1. DURVALUMAB [Suspect]
     Active Substance: DURVALUMAB
     Indication: Non-small cell lung cancer
     Dosage: 1500 MILLIGRAM
     Route: 065
     Dates: start: 20250910, end: 20251016
  2. TREMELIMUMAB [Suspect]
     Active Substance: TREMELIMUMAB
     Indication: Non-small cell lung cancer
     Dosage: 75 MILLIGRAM
     Route: 065
     Dates: start: 20250910, end: 20251016
  3. CARBOPLATIN [Concomitant]
     Active Substance: CARBOPLATIN
     Indication: Non-small cell lung cancer
     Dosage: UNK
     Route: 065
     Dates: start: 20251009, end: 20251016
  4. PACLITAXEL [Concomitant]
     Active Substance: PACLITAXEL
     Indication: Non-small cell lung cancer
     Dosage: (100 MG/M2)
     Route: 065
     Dates: start: 20251009, end: 20251016
  5. VITAMINS [Concomitant]
     Active Substance: VITAMINS
     Dosage: 1 GRAM, QD
     Route: 065
  6. CALONAL [Concomitant]
     Active Substance: ACETAMINOPHEN
     Dosage: 500 3 TABLETS IN 3 DIVIDED DOSES, AFTER BREAKFAST, LUNCH AND DINNER
     Route: 065
  7. MAGNESIUM OXIDE [Concomitant]
     Active Substance: MAGNESIUM OXIDE
     Dosage: 330 MILLIGRAM, 3 TABLETS IN 3 DIVIDED DOSES, AFTER BREAKFAST, LUNCH AND DINNER
     Route: 065
  8. SYMPROIC [Concomitant]
     Active Substance: NALDEMEDINE TOSYLATE
     Dosage: 0.2 MILLIGRAM, QD
     Route: 065
  9. OXYCODONE [Concomitant]
     Active Substance: OXYCODONE
     Dosage: 5 MILLIGRAM, BID
     Route: 065
  10. Oxinorm [Concomitant]
     Indication: Pain
     Dosage: 2.5 MILLIGRAM, 1 SACHET
     Route: 065
  11. BILASTINE [Concomitant]
     Active Substance: BILASTINE
     Dosage: 20 MILLIGRAM, QD
     Route: 065
  12. BETAMETHASONE DIPROPIONATE [Concomitant]
     Active Substance: BETAMETHASONE DIPROPIONATE
     Dosage: 2-3 TIMES DAILY FOR ERYTHEMA
     Route: 065
  13. DEXAMETHASONE [Concomitant]
     Active Substance: DEXAMETHASONE
     Dosage: UNK, QD
     Route: 061
  14. Azunol [Concomitant]
     Dosage: UNK, AS REQUIRED
     Route: 065
  15. HEPARINOID [Concomitant]
     Dosage: UNK, AS REQUIRED

REACTIONS (3)
  - Immune-mediated hepatitis [Recovering/Resolving]
  - Cytokine release syndrome [Recovering/Resolving]
  - Immune-mediated dermatitis [Unknown]

NARRATIVE: CASE EVENT DATE: 20251026
